FAERS Safety Report 21533694 (Version 2)
Quarter: 2022Q4

REPORT INFORMATION
  Report Type: Spontaneous
  Country: JP (occurrence: JP)
  Receive Date: 20221101
  Receipt Date: 20221121
  Transmission Date: 20230113
  Serious: Yes (Death, Other)
  Sender: FDA-Public Use
  Company Number: JP-GILEAD-2022-0600246

PATIENT
  Age: 87 Year
  Sex: Female
  Weight: 52.2 kg

DRUGS (3)
  1. VEKLURY [Suspect]
     Active Substance: REMDESIVIR
     Indication: COVID-19
     Dosage: 100 MG, QD
     Route: 041
     Dates: start: 20221005, end: 20221005
  2. SOTROVIMAB [Suspect]
     Active Substance: SOTROVIMAB
     Indication: COVID-19
     Dosage: 500 MG, QD
     Route: 041
     Dates: start: 20221005, end: 20221005
  3. CEFOPERAZONE SODIUM\SULBACTAM SODIUM [Suspect]
     Active Substance: CEFOPERAZONE SODIUM\SULBACTAM SODIUM
     Indication: Pneumonia bacterial
     Dosage: 1 G, BID
     Route: 041
     Dates: start: 20221005, end: 20221008

REACTIONS (5)
  - Renal impairment [Unknown]
  - Blood urea increased [Unknown]
  - Dehydration [Unknown]
  - COVID-19 [Fatal]
  - Off label use [Recovered/Resolved]

NARRATIVE: CASE EVENT DATE: 20221001
